FAERS Safety Report 23332609 (Version 1)
Quarter: 2023Q4

REPORT INFORMATION
  Report Type: Spontaneous
  Country: US (occurrence: US)
  Receive Date: 20231222
  Receipt Date: 20231222
  Transmission Date: 20240110
  Serious: No
  Sender: FDA-Public Use
  Company Number: US-CTI BIOPHARMA-2023US04054

PATIENT

DRUGS (13)
  1. VONJO [Suspect]
     Active Substance: PACRITINIB
     Indication: Myelofibrosis
     Dosage: 100 MG, BID
     Route: 048
  2. ALLOPURINOL [Concomitant]
     Active Substance: ALLOPURINOL
  3. CAPSAICIN [Concomitant]
     Active Substance: CAPSAICIN
  4. CLOTRIMAZOLE [Concomitant]
     Active Substance: CLOTRIMAZOLE
  5. DILTIAZEM [Concomitant]
     Active Substance: DILTIAZEM
  6. FLONASE [Concomitant]
     Active Substance: FLUTICASONE PROPIONATE
  7. LISINOPRIL [Concomitant]
     Active Substance: LISINOPRIL
  8. LORATADINE [Concomitant]
     Active Substance: LORATADINE
  9. MAGNESIUM [Concomitant]
     Active Substance: MAGNESIUM
  10. MELOXICAM [Concomitant]
     Active Substance: MELOXICAM
  11. METOPROLOL [Concomitant]
     Active Substance: METOPROLOL
  12. PREDNISONE [Concomitant]
     Active Substance: PREDNISONE
  13. VENLAFAXINE [Concomitant]
     Active Substance: VENLAFAXINE HYDROCHLORIDE

REACTIONS (1)
  - Disease progression [Unknown]
